FAERS Safety Report 15060785 (Version 8)
Quarter: 2022Q3

REPORT INFORMATION
  Report Type: Report from Study
  Country: IL (occurrence: None)
  Receive Date: 20180625
  Receipt Date: 20220708
  Transmission Date: 20221027
  Serious: Yes (Hospitalization)
  Sender: FDA-Public Use
  Company Number: IL-ROCHE-2138405

PATIENT
  Age: 54 Year
  Sex: Female
  Weight: 90 kg

DRUGS (29)
  1. PACLITAXEL [Suspect]
     Active Substance: PACLITAXEL
     Indication: Ovarian cancer
     Dosage: DATE OF MOST RECENT DOSE: 28/MAY/2018.
     Route: 042
     Dates: start: 20180528
  2. CARBOPLATIN [Suspect]
     Active Substance: CARBOPLATIN
     Indication: Ovarian cancer
     Dosage: A DOSE TO ACHIEVE A TARGET AREA UNDER THE CURVE (AUC) OF 6 MILLIGRAMS PER MILLILITER*MINUTE (MG/ML*M
     Route: 042
     Dates: start: 20180528
  3. ATEZOLIZUMAB [Suspect]
     Active Substance: ATEZOLIZUMAB
     Indication: Ovarian cancer
     Dosage: DATE OF MOST RECENT DOSE: 28/MAY/2018.
     Route: 042
     Dates: start: 20180528
  4. ACETAMINOPHEN [Concomitant]
     Active Substance: ACETAMINOPHEN
     Indication: Headache
     Dates: start: 20180601, end: 20180601
  5. ACETAMINOPHEN [Concomitant]
     Active Substance: ACETAMINOPHEN
     Indication: Pain
     Dates: start: 20180609, end: 20180609
  6. KYTRIL [Concomitant]
     Active Substance: GRANISETRON HYDROCHLORIDE
     Indication: Nausea
     Dates: start: 20180601, end: 20180601
  7. METAMIZOLE [Concomitant]
     Active Substance: METAMIZOLE
     Indication: Pain
     Dates: start: 20180601, end: 20180601
  8. METAMIZOLE [Concomitant]
     Active Substance: METAMIZOLE
     Indication: Headache
     Dates: start: 20180608, end: 20180613
  9. NYSTATIN [Concomitant]
     Active Substance: NYSTATIN
     Indication: Stomatitis
     Dates: start: 20180610, end: 20180614
  10. ACYCLOVIR [Concomitant]
     Active Substance: ACYCLOVIR
     Dates: start: 20180612, end: 20180619
  11. AVILAC [Concomitant]
     Indication: Constipation
     Dates: start: 20180610, end: 20180610
  12. ENOXAPARIN SODIUM [Concomitant]
     Active Substance: ENOXAPARIN SODIUM
     Indication: Aphasia
     Dates: start: 20180611, end: 20180611
  13. BISACODYL [Concomitant]
     Active Substance: BISACODYL
     Indication: Constipation
     Dates: start: 20180610, end: 20180610
  14. LOSEC [Concomitant]
     Active Substance: OMEPRAZOLE
     Indication: Dyspepsia
     Dates: start: 20180609, end: 20180611
  15. LOSEC [Concomitant]
     Active Substance: OMEPRAZOLE
     Dates: start: 20180614, end: 20180616
  16. PIPERACILLIN [Concomitant]
     Active Substance: PIPERACILLIN
     Indication: Urinary tract infection
     Dates: start: 20180607, end: 20180609
  17. CONTROLOC [Concomitant]
     Active Substance: PANTOPRAZOLE SODIUM
     Indication: Dyspepsia
     Dates: start: 20180612, end: 20180618
  18. MEROPENEM [Concomitant]
     Active Substance: MEROPENEM
     Dates: start: 20180611, end: 20180617
  19. DEXAMETHASONE [Concomitant]
     Active Substance: DEXAMETHASONE
     Route: 048
     Dates: start: 20180528, end: 20180530
  20. OMEPRAZOLE [Concomitant]
     Active Substance: OMEPRAZOLE
     Indication: Gastric ulcer
  21. IMIPRAMINE [Concomitant]
     Active Substance: IMIPRAMINE
     Indication: Nausea
     Dates: start: 20180528, end: 20180530
  22. AKYNZEO [Concomitant]
     Indication: Nausea
     Dates: start: 20180528, end: 20180528
  23. PHENERGAN [Concomitant]
     Active Substance: PROMETHAZINE HYDROCHLORIDE
     Dates: start: 20180528, end: 20180528
  24. ADVIL [Concomitant]
     Active Substance: IBUPROFEN
     Indication: Pain
     Dates: start: 20180530, end: 20180601
  25. CEFUROXIME AXETIL [Concomitant]
     Active Substance: CEFUROXIME AXETIL
     Indication: Urinary tract infection
     Dates: start: 20180607, end: 20180609
  26. PIPERACILLIN [Concomitant]
     Active Substance: PIPERACILLIN
     Indication: Urinary tract infection
     Dates: start: 20180607, end: 20180609
  27. ZANTAC [Concomitant]
     Active Substance: RANITIDINE HYDROCHLORIDE
     Dates: start: 20180528, end: 20180528
  28. DEXACORT [Concomitant]
     Active Substance: DEXAMETHASONE SODIUM PHOSPHATE
     Route: 042
     Dates: start: 20180528, end: 20180528
  29. SODIUM CHLORIDE [Concomitant]
     Active Substance: SODIUM CHLORIDE
     Dates: start: 20180609, end: 20180614

REACTIONS (2)
  - Aphasia [Recovered/Resolved]
  - Febrile neutropenia [Recovered/Resolved]

NARRATIVE: CASE EVENT DATE: 20180608
